FAERS Safety Report 6716732-6 (Version None)
Quarter: 2010Q2

REPORT INFORMATION
  Report Type: 
  Country: None (occurrence: None)
  Receive Date: 20100510
  Receipt Date: 20100503
  Transmission Date: 20101027
  Serious: No
  Sender: FDA-Public Use
  Company Number: US-BIOGENIDEC-2010BI014521

PATIENT
  Age: 53 Year
  Sex: Female

DRUGS (5)
  1. AVONEX [Suspect]
     Indication: MULTIPLE SCLEROSIS
     Route: 030
     Dates: start: 20100416, end: 20100423
  2. AVONEX [Suspect]
     Route: 030
     Dates: start: 20100430
  3. IMITREX [Concomitant]
     Indication: MIGRAINE
  4. COMPAZINE [Concomitant]
     Indication: MIGRAINE
  5. SEVILLA [Concomitant]
     Indication: FIBROMYALGIA

REACTIONS (3)
  - CLUSTER HEADACHE [None]
  - FIBROMYALGIA [None]
  - INFLUENZA LIKE ILLNESS [None]
